FAERS Safety Report 15263713 (Version 3)
Quarter: 2019Q2

REPORT INFORMATION
  Report Type: Spontaneous
  Country: US (occurrence: US)
  Receive Date: 20180810
  Receipt Date: 20190424
  Transmission Date: 20190711
  Serious: No
  Sender: FDA-Public Use
  Company Number: US-PFIZER INC-2018321073

PATIENT
  Age: 56 Year
  Sex: Female

DRUGS (2)
  1. EUCRISA [Suspect]
     Active Substance: CRISABOROLE
     Indication: DERMATITIS
     Dosage: UNK, 2X/DAY
     Route: 061
     Dates: start: 20180409, end: 20180815
  2. EUCRISA [Suspect]
     Active Substance: CRISABOROLE
     Indication: SKIN PLAQUE

REACTIONS (2)
  - Swelling [Unknown]
  - Drug hypersensitivity [Unknown]
